FAERS Safety Report 5292406-6 (Version None)
Quarter: 2007Q2

REPORT INFORMATION
  Report Type: 
  Country: None (occurrence: None)
  Receive Date: 20070410
  Receipt Date: 20040825
  Transmission Date: 20071010
  Serious: Yes (Death, Hospitalization)
  Sender: FDA-Public Use
  Company Number: JP-PFIZER INC-2007026866

PATIENT
  Age: 83 Year
  Sex: Female

DRUGS (5)
  1. AZULFIDINE EN [Suspect]
  2. METHOTREXATE [Suspect]
  3. BUCILLAMINE [Concomitant]
     Route: 048
  4. PREDNISOLONE [Concomitant]
  5. NSAID'S [Concomitant]

REACTIONS (13)
  - ACUTE RESPIRATORY FAILURE [None]
  - BONE MARROW FAILURE [None]
  - DIFFUSE LARGE B-CELL LYMPHOMA [None]
  - DISSEMINATED INTRAVASCULAR COAGULATION [None]
  - HEPATIC FUNCTION ABNORMAL [None]
  - LEUKOERYTHROBLASTOSIS [None]
  - LUMBAR SPINAL STENOSIS [None]
  - LYMPHOMA [None]
  - METASTASES TO BONE MARROW [None]
  - MYELOFIBROSIS [None]
  - NON-HODGKIN'S LYMPHOMA STAGE IV [None]
  - PULMONARY ALVEOLAR HAEMORRHAGE [None]
  - SPLENOMEGALY [None]
